FAERS Safety Report 18690204 (Version 2)
Quarter: 2021Q1

REPORT INFORMATION
  Report Type: Spontaneous
  Country: FR (occurrence: FR)
  Receive Date: 20201231
  Receipt Date: 20210105
  Transmission Date: 20210419
  Serious: Yes (Hospitalization, Other)
  Sender: FDA-Public Use
  Company Number: FR-SA-2020SA372576

PATIENT

DRUGS (3)
  1. ZOLPIDEM TARTRATE. [Suspect]
     Active Substance: ZOLPIDEM TARTRATE
     Dosage: CRUSHED TABLET OF ZOLPIDEM 10 MG
  2. BROMAZEPAM [Concomitant]
     Active Substance: BROMAZEPAM
  3. BUPRENORPHINE. [Concomitant]
     Active Substance: BUPRENORPHINE

REACTIONS (11)
  - Paraesthesia [Recovered/Resolved with Sequelae]
  - Intentional product misuse [Unknown]
  - Extremity necrosis [Recovered/Resolved with Sequelae]
  - Reaction to excipient [Recovered/Resolved with Sequelae]
  - Peripheral artery occlusion [Recovered/Resolved with Sequelae]
  - Peripheral ischaemia [Unknown]
  - Cyanosis [Recovered/Resolved with Sequelae]
  - Peripheral coldness [Recovered/Resolved with Sequelae]
  - Pain in extremity [Recovered/Resolved with Sequelae]
  - Accidental exposure to product [Recovered/Resolved with Sequelae]
  - Incorrect route of product administration [Recovered/Resolved with Sequelae]
